FAERS Safety Report 13515455 (Version 2)
Quarter: 2017Q2

REPORT INFORMATION
  Report Type: Spontaneous
  Country: US (occurrence: US)
  Receive Date: 20170504
  Receipt Date: 20170606
  Transmission Date: 20170830
  Serious: Yes (Hospitalization, Other)
  Sender: FDA-Public Use
  Company Number: US-PFIZER INC-2017190695

PATIENT
  Age: 56 Year
  Sex: Female
  Weight: 63.5 kg

DRUGS (1)
  1. IBRANCE [Suspect]
     Active Substance: PALBOCICLIB
     Indication: BREAST CANCER
     Dosage: 125 MG, CYCLIC[DAILY FOR 21 DAYS OFF FOR 7 DAYS]
     Route: 048
     Dates: start: 2016

REACTIONS (5)
  - Neoplasm recurrence [Recovering/Resolving]
  - Brain oedema [Recovering/Resolving]
  - Brain abscess [Recovering/Resolving]
  - Mental impairment [Recovering/Resolving]
  - Loss of consciousness [Recovered/Resolved]

NARRATIVE: CASE EVENT DATE: 201703
